FAERS Safety Report 6189842-2 (Version None)
Quarter: 2009Q2

REPORT INFORMATION
  Report Type: 
  Country: None (occurrence: None)
  Receive Date: 20090512
  Receipt Date: 20090512
  Transmission Date: 20091009
  Serious: No
  Sender: FDA-Public Use
  Company Number: None

PATIENT
  Age: 61 Year
  Sex: Male
  Weight: 99.7913 kg

DRUGS (1)
  1. MINOCYCLINE HCL [Suspect]
     Indication: ROSACEA
     Dosage: 100MG TWICE A DAY PO
     Route: 048
     Dates: start: 20080901, end: 20090423

REACTIONS (1)
  - SKIN HYPERPIGMENTATION [None]
